FAERS Safety Report 10523838 (Version 3)
Quarter: 2014Q4

REPORT INFORMATION
  Report Type: Spontaneous
  Country: JP (occurrence: JP)
  Receive Date: 20141017
  Receipt Date: 20141229
  Transmission Date: 20150528
  Serious: Yes (Death)
  Sender: FDA-Public Use
  Company Number: JP-UCBSA-2014014483

PATIENT
  Age: 61 Year
  Sex: Female

DRUGS (4)
  1. ZONISAMIDE. [Concomitant]
     Active Substance: ZONISAMIDE
     Indication: EPILEPSY
     Dosage: 500 MG, UNKNOWN FREQUENCY
  2. KEPPRA [Suspect]
     Active Substance: LEVETIRACETAM
     Indication: EPILEPSY
     Dosage: 500 MG, ONCE DAILY (QD)
     Route: 048
     Dates: start: 20140714, end: 20140820
  3. PHENOBARBITAL. [Concomitant]
     Active Substance: PHENOBARBITAL
     Indication: SEIZURE
     Dosage: 1 AMPULE
     Route: 030
     Dates: start: 201408, end: 201408
  4. EPIRENAT [Concomitant]
     Active Substance: VALPROATE SODIUM
     Indication: EPILEPSY
     Dosage: 800 MG DAILY
     Route: 048
     Dates: start: 19921013, end: 20140820

REACTIONS (1)
  - Death [Fatal]

NARRATIVE: CASE EVENT DATE: 20140821
